FAERS Safety Report 23786544 (Version 4)
Quarter: 2024Q3

REPORT INFORMATION
  Report Type: Spontaneous
  Country: US (occurrence: US)
  Receive Date: 20240426
  Receipt Date: 20240822
  Transmission Date: 20241016
  Serious: Yes (Other)
  Sender: BRISTOL MYERS SQUIBB
  Company Number: US-BRISTOL-MYERS SQUIBB COMPANY-2024-065695

PATIENT
  Age: 49 Year
  Sex: Male
  Weight: 111.58 kg

DRUGS (4)
  1. POMALYST [Suspect]
     Active Substance: POMALIDOMIDE
     Indication: Plasma cell myeloma
     Dosage: FREQUENCY: 21/DAILY X 21 DAYS Q 4 WEEKS
     Route: 048
     Dates: start: 20240226, end: 202405
  2. POMALYST [Suspect]
     Active Substance: POMALIDOMIDE
     Dosage: FREQUENCY: 21/DAILY
     Route: 048
     Dates: start: 202405
  3. DARZALEX [Concomitant]
     Active Substance: DARATUMUMAB
     Indication: Plasma cell myeloma recurrent
     Dosage: FREQUENCY: WEEKLY FOR 8 WEEKS THEN EVERY OTHER WEEK
     Route: 042
     Dates: start: 20240325
  4. DARZALEX [Concomitant]
     Active Substance: DARATUMUMAB
     Dosage: FREQUENCY: WEEKLY FOR 8 WEEKS THEN EVERY OTHER WEEK
     Route: 042
     Dates: start: 20240401

REACTIONS (1)
  - Neutropenia [Recovered/Resolved]

NARRATIVE: CASE EVENT DATE: 20240501
